FAERS Safety Report 23983407 (Version 1)
Quarter: 2024Q2

REPORT INFORMATION
  Report Type: Spontaneous
  Country: US (occurrence: US)
  Receive Date: 20240617
  Receipt Date: 20240617
  Transmission Date: 20240716
  Serious: No
  Sender: FDA-Public Use
  Company Number: US-SA-SAC20240612001160

PATIENT
  Sex: Female

DRUGS (5)
  1. DUPIXENT [Suspect]
     Active Substance: DUPILUMAB
     Indication: Asthma
     Dosage: 300 MG, QOW
     Route: 058
     Dates: start: 202002
  2. DICLOFENAC [Concomitant]
     Active Substance: DICLOFENAC
  3. LISINOPRIL [Concomitant]
     Active Substance: LISINOPRIL
  4. CELEXAL [Concomitant]
  5. VITAMINS [Concomitant]
     Active Substance: VITAMINS

REACTIONS (3)
  - Illness [Unknown]
  - Lung disorder [Unknown]
  - Product dose omission issue [Unknown]
